FAERS Safety Report 5581652-X (Version None)
Quarter: 2007Q4

REPORT INFORMATION
  Report Type: 
  Country: None (occurrence: None)
  Receive Date: 20071130
  Receipt Date: 20070814
  Transmission Date: 20080405
  Serious: No
  Sender: FDA-Public Use
  Company Number: US200708003057

PATIENT
  Age: 57 Year
  Sex: Female

DRUGS (4)
  1. BYETTA [Suspect]
     Indication: WEIGHT DECREASED
     Dosage: 5 UG, 2/D, SUBCUTANEOUS
     Route: 058
     Dates: start: 20070301, end: 20070501
  2. BYETTA [Suspect]
     Indication: WEIGHT DECREASED
     Dosage: 5 UG, 2/D, SUBCUTANEOUS
     Route: 058
     Dates: start: 20070701
  3. ACTOS [Concomitant]
  4. DRUG USE IN DIABETES [Concomitant]

REACTIONS (10)
  - ABDOMINAL PAIN UPPER [None]
  - BREATH ODOUR [None]
  - CONTUSION [None]
  - DECREASED APPETITE [None]
  - DYSGEUSIA [None]
  - INJECTION SITE DISCOMFORT [None]
  - NAUSEA [None]
  - SENSATION OF FOREIGN BODY [None]
  - TONGUE COATED [None]
  - WEIGHT DECREASED [None]
